FAERS Safety Report 12978605 (Version 1)
Quarter: 2016Q4

REPORT INFORMATION
  Report Type: Report from Study
  Country: CA (occurrence: CA)
  Receive Date: 20161128
  Receipt Date: 20161128
  Transmission Date: 20170207
  Serious: Yes (Other)
  Sender: FDA-Public Use
  Company Number: CA-JNJFOC-20161118310

PATIENT
  Sex: Male

DRUGS (1)
  1. STELARA [Suspect]
     Active Substance: USTEKINUMAB
     Indication: PSORIATIC ARTHROPATHY
     Route: 058
     Dates: start: 20150903

REACTIONS (7)
  - Nasopharyngitis [Unknown]
  - Pneumonia [Unknown]
  - Pain in extremity [Unknown]
  - Loss of consciousness [Unknown]
  - Asthma [Unknown]
  - Hypertension [Unknown]
  - Back pain [Unknown]
